FAERS Safety Report 22858877 (Version 2)
Quarter: 2023Q4

REPORT INFORMATION
  Report Type: Report from Study
  Country: US (occurrence: US)
  Receive Date: 20230824
  Receipt Date: 20231025
  Transmission Date: 20240109
  Serious: Yes (Other)
  Sender: FDA-Public Use
  Company Number: US-002147023-NVSC2023US181618

PATIENT
  Sex: Female

DRUGS (1)
  1. ZOLGENSMA [Suspect]
     Active Substance: ONASEMNOGENE ABEPARVOVEC-XIOI
     Indication: Spinal muscular atrophy
     Dosage: ONCE/SINGLE
     Route: 042
     Dates: start: 20230803, end: 20230803

REACTIONS (3)
  - Myocardial necrosis marker increased [Recovering/Resolving]
  - Platelet count abnormal [Recovering/Resolving]
  - Hepatic enzyme increased [Recovering/Resolving]
